FAERS Safety Report 9699233 (Version 2)
Quarter: 2013Q4

REPORT INFORMATION
  Report Type: Spontaneous
  Country: US (occurrence: US)
  Receive Date: 20131120
  Receipt Date: 20131120
  Transmission Date: 20140711
  Serious: No
  Sender: FDA-Public Use
  Company Number: US-GILEAD-2008-0014853

PATIENT
  Sex: Female
  Weight: 88.9 kg

DRUGS (17)
  1. LETAIRIS [Suspect]
     Indication: PULMONARY ARTERIAL HYPERTENSION
     Route: 048
  2. REVATIO [Concomitant]
     Route: 048
  3. LASIX [Concomitant]
     Route: 048
  4. PRINIVIL [Concomitant]
     Route: 048
  5. ELAVIL [Concomitant]
     Route: 048
  6. LEXAPRO [Concomitant]
     Route: 048
  7. VENTOLIN NEBULIZER [Concomitant]
     Route: 055
  8. SINGULAIR [Concomitant]
     Route: 048
  9. PULMICORT [Concomitant]
     Dosage: PRN
     Route: 055
  10. IPRATROPIUM [Concomitant]
     Route: 055
  11. OXYGEN [Concomitant]
     Dosage: CONTINUOUS
     Route: 055
  12. LANTUS [Concomitant]
     Dosage: UD
     Route: 058
  13. NOVOLIN 70/30 [Concomitant]
     Route: 058
  14. GLUCOPHAGE [Concomitant]
     Route: 048
  15. ACIPHEX [Concomitant]
     Route: 048
  16. KLOR-CON [Concomitant]
     Route: 048
  17. MOTRIN IB [Concomitant]
     Dosage: PRN
     Route: 048

REACTIONS (4)
  - Fatigue [Unknown]
  - Chest pain [Unknown]
  - Haemoglobin decreased [Unknown]
  - Palpitations [Unknown]
